FAERS Safety Report 6257359-2 (Version None)
Quarter: 2009Q3

REPORT INFORMATION
  Report Type: 
  Country: None (occurrence: None)
  Receive Date: 20090706
  Receipt Date: 20090625
  Transmission Date: 20100115
  Serious: Yes (Hospitalization)
  Sender: FDA-Public Use
  Company Number: PHHO2009NL06477

PATIENT
  Sex: Male
  Weight: 118 kg

DRUGS (3)
  1. RAD 666 RAD+TAB [Suspect]
     Indication: LIVER TRANSPLANT
     Dosage: 6 MG
     Route: 048
     Dates: start: 20090224, end: 20090609
  2. SIMVASTATIN [Concomitant]
  3. SOLU-MEDROL [Concomitant]

REACTIONS (2)
  - HEPATIC ENZYME INCREASED [None]
  - LIVER TRANSPLANT REJECTION [None]
